FAERS Safety Report 6700566-2 (Version None)
Quarter: 2010Q2

REPORT INFORMATION
  Report Type: 
  Country: None (occurrence: None)
  Receive Date: 20100428
  Receipt Date: 20100421
  Transmission Date: 20101027
  Serious: Yes (Disabling)
  Sender: FDA-Public Use
  Company Number: B0649266A

PATIENT
  Age: 64 Year
  Sex: Male

DRUGS (2)
  1. ZOVIRAX [Suspect]
     Indication: HERPES ZOSTER
     Dosage: 5MGK PER DAY
     Route: 042
     Dates: start: 20100415, end: 20100415
  2. ZOVIRAX [Suspect]
     Dosage: 5MGK PER DAY
     Route: 042
     Dates: start: 20100418, end: 20100418

REACTIONS (4)
  - ABNORMAL BEHAVIOUR [None]
  - ALTERED STATE OF CONSCIOUSNESS [None]
  - DECREASED APPETITE [None]
  - PSYCHIATRIC SYMPTOM [None]
